FAERS Safety Report 18198973 (Version 1)
Quarter: 2020Q3

REPORT INFORMATION
  Report Type: Spontaneous
  Country: DE (occurrence: DE)
  Receive Date: 20200826
  Receipt Date: 20200826
  Transmission Date: 20201103
  Serious: Yes (Hospitalization)
  Sender: FDA-Public Use
  Company Number: DE-TEVA-2020-DE-1820142

PATIENT
  Age: 66 Year
  Sex: Male
  Weight: 140 kg

DRUGS (8)
  1. DULOXETIN [Interacting]
     Active Substance: DULOXETINE
     Dosage: 60 MILLIGRAM DAILY; 1?0?1?0
     Route: 048
  2. BISOPROLOL [Suspect]
     Active Substance: BISOPROLOL
     Dosage: 5 MILLIGRAM DAILY; 1?0?0?0
     Route: 048
  3. MOXONIDIN [Interacting]
     Active Substance: MOXONIDINE
     Dosage: .3 MILLIGRAM DAILY; 1?0?0?0
     Route: 048
  4. VALSARTAN. [Interacting]
     Active Substance: VALSARTAN
     Dosage: 160 MILLIGRAM DAILY;  1?0?0?0
     Route: 048
  5. HYDROCHLOROTHIAZID [Interacting]
     Active Substance: HYDROCHLOROTHIAZIDE
     Dosage: 12.5 MILLIGRAM DAILY; 1?0?0?0
     Route: 048
  6. FINASTERIDE. [Interacting]
     Active Substance: FINASTERIDE
     Dosage: 5 MILLIGRAM DAILY;  0?0?1?0
     Route: 048
  7. TAMSULOSIN [Interacting]
     Active Substance: TAMSULOSIN
     Dosage: .4 MILLIGRAM DAILY;  0?0?1?0
     Route: 048
  8. AMLODIPIN [Interacting]
     Active Substance: AMLODIPINE BESYLATE
     Dosage: 10 MILLIGRAM DAILY;  1?0?0?0
     Route: 048

REACTIONS (8)
  - General physical health deterioration [Recovering/Resolving]
  - Renal impairment [Recovering/Resolving]
  - Hypotension [Recovering/Resolving]
  - Dizziness [Recovering/Resolving]
  - Labelled drug-drug interaction medication error [Unknown]
  - Gait disturbance [Recovering/Resolving]
  - Vertigo [Recovering/Resolving]
  - Feeling hot [Recovering/Resolving]
